FAERS Safety Report 8050741-2 (Version None)
Quarter: 2012Q1

REPORT INFORMATION
  Report Type: 
  Country: None (occurrence: None)
  Receive Date: 20120117
  Receipt Date: 20120117
  Transmission Date: 20120608
  Serious: Yes (Hospitalization)
  Sender: FDA-Public Use
  Company Number: None

PATIENT
  Age: 79 Year
  Sex: Male

DRUGS (5)
  1. LANTUS [Concomitant]
  2. NORVASC [Concomitant]
     Route: 048
  3. LOPRESSOR [Concomitant]
     Route: 048
  4. ZOLPIDEM [Suspect]
     Indication: INSOMNIA
     Dosage: 10 MG
     Route: 048
     Dates: start: 20110811, end: 20110811
  5. NUCYNTA [Concomitant]
     Route: 048

REACTIONS (2)
  - FEMUR FRACTURE [None]
  - FALL [None]
